FAERS Safety Report 16141645 (Version 3)
Quarter: 2019Q3

REPORT INFORMATION
  Report Type: Report from Study
  Country: US (occurrence: US)
  Receive Date: 20190401
  Receipt Date: 20190930
  Transmission Date: 20191004
  Serious: No
  Sender: FDA-Public Use
  Company Number: US-CLOVIS ONCOLOGY-CLO-2019-000285

PATIENT
  Sex: Female

DRUGS (3)
  1. RUBRACA [Suspect]
     Active Substance: RUCAPARIB CAMSYLATE
     Indication: OVARIAN CANCER
     Dosage: 300 MG, BID
     Route: 048
     Dates: start: 20190206, end: 20190212
  2. RUBRACA [Suspect]
     Active Substance: RUCAPARIB CAMSYLATE
     Dosage: 600 MG, BID
     Route: 048
     Dates: start: 20190213, end: 2019
  3. RUBRACA [Suspect]
     Active Substance: RUCAPARIB CAMSYLATE
     Dosage: 600 MG, BID
     Route: 048
     Dates: start: 20190314, end: 20190613

REACTIONS (20)
  - Sneezing [Unknown]
  - Nausea [Recovering/Resolving]
  - Flatulence [Unknown]
  - Decreased appetite [Unknown]
  - Dysphonia [Recovered/Resolved]
  - Headache [Unknown]
  - Dyspnoea [Unknown]
  - Paranasal sinus discomfort [Unknown]
  - Nasopharyngitis [Not Recovered/Not Resolved]
  - Fatigue [Recovered/Resolved]
  - Malignant neoplasm progression [Not Recovered/Not Resolved]
  - Tumour marker increased [Unknown]
  - Malaise [Recovered/Resolved]
  - Dizziness [Recovered/Resolved]
  - Fatigue [Not Recovered/Not Resolved]
  - Productive cough [Recovered/Resolved]
  - Cough [Not Recovered/Not Resolved]
  - Stress urinary incontinence [Unknown]
  - Throat tightness [Recovered/Resolved]
  - Carbohydrate antigen 125 increased [Unknown]

NARRATIVE: CASE EVENT DATE: 2019
